FAERS Safety Report 7269824-X (Version None)
Quarter: 2011Q1

REPORT INFORMATION
  Report Type: 
  Country: None (occurrence: None)
  Receive Date: 20110202
  Receipt Date: 20110119
  Transmission Date: 20110831
  Serious: Yes (Other)
  Sender: FDA-Public Use
  Company Number: GB-AMGEN-US221063

PATIENT
  Age: 54 Year
  Sex: Male

DRUGS (5)
  1. ENBREL [Suspect]
     Indication: RHEUMATOID ARTHRITIS
     Dosage: 25 MG, 2 TIMES/WK
     Route: 058
     Dates: start: 20050928
  2. PROZAC                             /00724401/ [Concomitant]
     Dosage: UNK UNK, UNK
  3. ETODOLAC [Concomitant]
     Dosage: 600 MG, QD
     Route: 048
     Dates: start: 20050522
  4. CO-DYDRAMOL [Concomitant]
     Dosage: UNK
  5. METHOTREXATE [Suspect]
     Dosage: 15 MG, QWK
     Route: 048
     Dates: start: 19990218

REACTIONS (3)
  - PSEUDOMONAS INFECTION [None]
  - AURAL POLYP [None]
  - EAR INFECTION [None]
